FAERS Safety Report 8296724-9 (Version None)
Quarter: 2012Q2

REPORT INFORMATION
  Report Type: 
  Country: None (occurrence: None)
  Receive Date: 20120418
  Receipt Date: 20120323
  Transmission Date: 20120825
  Serious: Yes (Other)
  Sender: FDA-Public Use
  Company Number: US-BAXTER-2012BAX001000

PATIENT
  Age: 34 Year
  Sex: Female

DRUGS (5)
  1. RITUXIMAB [Suspect]
     Indication: NON-HODGKIN'S LYMPHOMA
  2. DOXORUBICIN HCL [Suspect]
     Indication: NON-HODGKIN'S LYMPHOMA
  3. VINCRISTINE [Suspect]
     Indication: NON-HODGKIN'S LYMPHOMA
  4. PREDNISONE TAB [Suspect]
     Indication: NON-HODGKIN'S LYMPHOMA
  5. CYCLOPHOSPHAMIDE [Suspect]
     Indication: NON-HODGKIN'S LYMPHOMA

REACTIONS (2)
  - MATERNAL EXPOSURE DURING PREGNANCY [None]
  - STILLBIRTH [None]
